FAERS Safety Report 13350372 (Version 1)
Quarter: 2017Q1

REPORT INFORMATION
  Report Type: Spontaneous
  Country: US (occurrence: US)
  Receive Date: 20170320
  Receipt Date: 20170320
  Transmission Date: 20170429
  Serious: Yes (Other)
  Sender: FDA-Public Use
  Company Number: US-ELI_LILLY_AND_COMPANY-US201703005649

PATIENT
  Age: 30 Year
  Sex: Female

DRUGS (3)
  1. OLANZAPINE. [Suspect]
     Active Substance: OLANZAPINE
     Indication: PRODUCT USED FOR UNKNOWN INDICATION
     Dosage: 1 DF, QD
     Route: 065
  2. DIPHENHYDRAMINE HYDROCHLORIDE. [Concomitant]
     Active Substance: DIPHENHYDRAMINE HYDROCHLORIDE
     Indication: AGGRESSION
  3. HALOPREDONE [Concomitant]
     Indication: AGGRESSION
     Route: 065

REACTIONS (3)
  - Catatonia [Recovering/Resolving]
  - Neuroleptic malignant syndrome [Recovering/Resolving]
  - Encephalitis autoimmune [Recovering/Resolving]
